FAERS Safety Report 15355083 (Version 4)
Quarter: 2018Q4

REPORT INFORMATION
  Report Type: Spontaneous
  Country: US (occurrence: US)
  Receive Date: 20180906
  Receipt Date: 20181102
  Transmission Date: 20190204
  Serious: No
  Sender: FDA-Public Use
  Company Number: US-PFIZER INC-2018354087

PATIENT
  Age: 66 Year
  Sex: Female

DRUGS (2)
  1. EUCRISA [Suspect]
     Active Substance: CRISABOROLE
     Indication: DERMATITIS
     Dosage: UNK, ON HANDS TWICE A DAY
     Dates: start: 201808
  2. EUCRISA [Suspect]
     Active Substance: CRISABOROLE
     Dosage: UNK, 1X/DAY [ON THE HANDS]

REACTIONS (6)
  - Burning sensation [Unknown]
  - Pain [Unknown]
  - Dermatitis [Unknown]
  - Drug effect incomplete [Unknown]
  - Condition aggravated [Unknown]
  - Skin fissures [Unknown]
